FAERS Safety Report 5534617-8 (Version None)
Quarter: 2007Q4

REPORT INFORMATION
  Report Type: 
  Country: None (occurrence: None)
  Receive Date: 20071205
  Receipt Date: 20071123
  Transmission Date: 20080405
  Serious: Yes (Hospitalization, Other)
  Sender: FDA-Public Use
  Company Number: BR-JNJFOC-20071007128

PATIENT
  Age: 89 Year
  Sex: Female
  Weight: 49 kg

DRUGS (8)
  1. ACETAMINOPHEN W/ CODEINE [Suspect]
     Indication: BACK PAIN
     Route: 048
     Dates: start: 20071011, end: 20071014
  2. PROFENID [Suspect]
     Indication: DRUG USE FOR UNKNOWN INDICATION
     Route: 030
  3. DIPROSONE [Suspect]
     Indication: DRUG USE FOR UNKNOWN INDICATION
     Route: 065
  4. CAPTOPRIL [Concomitant]
     Indication: HYPERTENSION
     Route: 065
  5. FUROSAN [Concomitant]
     Indication: HYPERTENSION
     Route: 048
  6. CARVEDILOL [Concomitant]
     Indication: TACHYCARDIA
     Route: 065
  7. MINIDIAB [Concomitant]
     Indication: DIABETES MELLITUS
     Route: 065
  8. SOMALGIN [Concomitant]
     Indication: PROPHYLAXIS
     Route: 065

REACTIONS (2)
  - CARDIAC FAILURE [None]
  - DRUG INEFFECTIVE [None]
